FAERS Safety Report 8081622-6 (Version None)
Quarter: 2012Q1

REPORT INFORMATION
  Report Type: 
  Country: None (occurrence: None)
  Receive Date: 20120130
  Receipt Date: 20120126
  Transmission Date: 20120608
  Serious: Yes (Other)
  Sender: FDA-Public Use
  Company Number: US-PFIZER INC-2012022337

PATIENT
  Sex: Female
  Weight: 71.655 kg

DRUGS (11)
  1. COREG [Concomitant]
     Indication: HYPERTENSION
     Dosage: 6.25 MG, DAILY
  2. RISPERDAL [Suspect]
     Dosage: 3 MG, DAILY
  3. RISPERDAL [Suspect]
     Dosage: UNK, DAILY
     Dates: end: 20110101
  4. WELLBUTRIN [Concomitant]
     Indication: DEPRESSION
     Dosage: 75 MG, 2X/DAY
  5. LEXAPRO [Concomitant]
     Indication: DEPRESSION
     Dosage: UNK
  6. ZOCOR [Concomitant]
     Indication: BLOOD CHOLESTEROL INCREASED
     Dosage: 40 MG, DAILY
  7. GEODON [Suspect]
     Indication: SCHIZOAFFECTIVE DISORDER
     Dosage: 40 MG, DAILY
     Dates: start: 20110101
  8. KLONOPIN [Concomitant]
     Indication: PANIC DISORDER
     Dosage: 1 MG, 3X/DAY
  9. RISPERDAL [Suspect]
     Dosage: 2 MG, DAILY
  10. RISPERDAL [Suspect]
     Indication: PSYCHOTIC DISORDER
     Dosage: 4 MG, DAILY
     Dates: start: 19920101
  11. ALTACE [Concomitant]
     Indication: HYPERTENSION
     Dosage: 5 MG, DAILY

REACTIONS (3)
  - INSOMNIA [None]
  - MENTAL DISORDER [None]
  - AMNESIA [None]
